FAERS Safety Report 19889101 (Version 1)
Quarter: 2021Q3

REPORT INFORMATION
  Report Type: Spontaneous
  Country: US (occurrence: US)
  Receive Date: 20210928
  Receipt Date: 20210928
  Transmission Date: 20211014
  Serious: Yes (Life-Threatening, Hospitalization)
  Sender: FDA-Public Use
  Company Number: None

PATIENT
  Age: 32 Year
  Sex: Male
  Weight: 103 kg

DRUGS (15)
  1. OMEPRAZOLE 40MG [Concomitant]
     Active Substance: OMEPRAZOLE
     Dates: start: 20201007
  2. RISPERDAL CONSTA [Concomitant]
     Active Substance: RISPERIDONE
     Dates: start: 20210224
  3. SENNA PLUS [Concomitant]
     Active Substance: DOCUSATE SODIUM\SENNOSIDES\SENNOSIDES A AND B
     Dates: start: 20201007
  4. LANTUS INSULIN 16 UNITS [Concomitant]
     Dates: start: 20201007
  5. LORATADINE 10MG [Concomitant]
     Active Substance: LORATADINE
     Dates: start: 20201007
  6. PROPRANOLOL 30MG [Concomitant]
     Dates: start: 20210222
  7. VITAMIN D3 1000 UNIT [Concomitant]
     Dates: start: 20201007
  8. CLOZAPINE. [Suspect]
     Active Substance: CLOZAPINE
     Indication: PSYCHOTIC DISORDER
     Route: 048
     Dates: start: 20210804, end: 20210819
  9. DOCUSATE CALCIUM 240MG [Concomitant]
     Dates: start: 20210803
  10. FLONASE [Concomitant]
     Active Substance: FLUTICASONE PROPIONATE
     Dates: start: 20201007
  11. BISACODYL 10MG [Concomitant]
     Dates: start: 20210803
  12. LITHIUM SR 1200MG [Concomitant]
     Dates: start: 20200923
  13. DIVALPROEX ER 750MG [Concomitant]
     Dates: start: 20210728
  14. CLOZAPINE. [Suspect]
     Active Substance: CLOZAPINE
     Indication: PSYCHOTIC DISORDER
     Route: 048
     Dates: start: 20210804, end: 20210819
  15. METFORMIN [Concomitant]
     Active Substance: METFORMIN HYDROCHLORIDE
     Dates: start: 20201007

REACTIONS (8)
  - Refusal of treatment by patient [None]
  - Left ventricular dysfunction [None]
  - Heart rate increased [None]
  - Myocarditis [None]
  - Ventricular hypokinesia [None]
  - Body temperature increased [None]
  - Ejection fraction decreased [None]
  - Pain [None]

NARRATIVE: CASE EVENT DATE: 20210819
